FAERS Safety Report 9929443 (Version 2)
Quarter: 2014Q2

REPORT INFORMATION
  Report Type: Spontaneous
  Country: US (occurrence: US)
  Receive Date: 20140227
  Receipt Date: 20140523
  Transmission Date: 20141212
  Serious: No
  Sender: FDA-Public Use
  Company Number: US-PFIZER INC-2014053674

PATIENT
  Age: 62 Year
  Sex: Female

DRUGS (17)
  1. XALKORI [Suspect]
     Indication: NON-SMALL CELL LUNG CANCER
     Dosage: 200 MG, DAILY
     Route: 048
     Dates: start: 20111111, end: 201111
  2. XALKORI [Suspect]
     Dosage: 200 MG, DAILY
     Dates: start: 201112, end: 20140317
  3. KEPPRA [Concomitant]
     Indication: EPILEPSY
     Dosage: 500 MG, 2 TABS, 2X/DAY
     Route: 048
  4. SERTRALINE [Concomitant]
     Dosage: 50 MG, 1X/DAY
  5. TEMAZEPAM [Concomitant]
     Dosage: 30 MG, AS NEEDED (30 MG Q.H.S. P.R.N.)
  6. VITAMIN D [Concomitant]
     Dosage: UNK (Q.D)
  7. VITAMIN B12 [Concomitant]
     Dosage: UNK
  8. HYOSCYAMINE [Concomitant]
     Dosage: 0.125 MG, AS NEEDED
  9. OMEPRAZOLE [Concomitant]
     Dosage: 20 MG, AS NEEDED
  10. COUMADIN [Concomitant]
     Indication: DEEP VEIN THROMBOSIS
     Dosage: 5 MG, 1X/DAY, AS DIRECTED
     Dates: end: 201010
  11. ZOFRAN [Concomitant]
     Dosage: UNK (P.R.N)
  12. LORAZEPAM [Concomitant]
     Dosage: UNK (P.R.N)
  13. VITAMIN C [Concomitant]
     Dosage: UNK (Q.D)
  14. PHENYTOIN [Concomitant]
     Dosage: UNK (100 MG 1-3 Q.D.)
  15. HYDROCODONE [Concomitant]
     Dosage: UNK (7.5/750 Q.6H. PRN)
  16. EXCEDRIN MIGRAINE [Concomitant]
     Dosage: UNK (PRN)
  17. DILANTIN [Concomitant]
     Indication: EPILEPSY
     Dosage: UNK

REACTIONS (6)
  - Diarrhoea [Unknown]
  - Fatigue [Unknown]
  - Blood alkaline phosphatase increased [Unknown]
  - Musculoskeletal pain [Unknown]
  - Disease progression [Recovering/Resolving]
  - Non-small cell lung cancer [Recovering/Resolving]
